FAERS Safety Report 16463137 (Version 5)
Quarter: 2019Q3

REPORT INFORMATION
  Report Type: Spontaneous
  Country: CH (occurrence: CH)
  Receive Date: 20190621
  Receipt Date: 20190906
  Transmission Date: 20191004
  Serious: Yes (Other)
  Sender: FDA-Public Use
  Company Number: CH-BEH-2019102947

PATIENT
  Sex: Male
  Weight: 92 kg

DRUGS (9)
  1. PRIVIGEN [Suspect]
     Active Substance: HUMAN IMMUNOGLOBULIN G
     Dosage: 14 MILLILITER/30MIN, 20 G LOT
     Route: 065
     Dates: start: 20190418, end: 20190418
  2. CO-AMOXICILLIN [Suspect]
     Active Substance: AMOXICILLIN\CLAVULANATE POTASSIUM
     Indication: C-REACTIVE PROTEIN INCREASED
     Dosage: 1 GRAM, BID
     Route: 065
     Dates: start: 201905
  3. AUGMENTIN [Suspect]
     Active Substance: AMOXICILLIN\CLAVULANATE POTASSIUM
     Indication: C-REACTIVE PROTEIN INCREASED
     Dosage: 1 GRAM, BID
     Route: 065
  4. PRIVIGEN [Suspect]
     Active Substance: HUMAN IMMUNOGLOBULIN G
     Dosage: UNK OF 20 G LOT AND 5 G LOT
     Route: 065
     Dates: start: 20190307, end: 20190307
  5. PRIVIGEN [Suspect]
     Active Substance: HUMAN IMMUNOGLOBULIN G
     Dosage: 14 MILLILITER/30MIN, 20 G LOT
     Route: 065
     Dates: start: 20190307, end: 20190307
  6. PRIVIGEN [Suspect]
     Active Substance: HUMAN IMMUNOGLOBULIN G
     Dosage: 54 MILLILITER/30MIN, 5 G LOT
     Route: 065
     Dates: start: 20190307, end: 20190307
  7. PRIVIGEN [Suspect]
     Active Substance: HUMAN IMMUNOGLOBULIN G
     Dosage: 55 MILLILITER/30MIN, 5 G LOT
     Route: 065
     Dates: start: 20190418, end: 20190418
  8. PRIVIGEN [Suspect]
     Active Substance: HUMAN IMMUNOGLOBULIN G
     Indication: IMMUNE THROMBOCYTOPENIC PURPURA
     Dosage: EVERY 4 TO 6 WEEKS 20, 30 OR 25 G
     Route: 065
     Dates: start: 201804
  9. PRIVIGEN [Suspect]
     Active Substance: HUMAN IMMUNOGLOBULIN G
     Dosage: UNK OF 20 G LOT AND 5 G LOT
     Route: 065
     Dates: start: 20190418, end: 20190418

REACTIONS (14)
  - Haemoglobin decreased [Unknown]
  - Platelet count decreased [Unknown]
  - Pericarditis [Unknown]
  - Pleural effusion [Unknown]
  - Coxsackie viral infection [Unknown]
  - Pyrexia [Unknown]
  - Inflammatory marker increased [Unknown]
  - Myocarditis [Unknown]
  - Chest pain [Unknown]
  - Suspected transmission of an infectious agent via product [Unknown]
  - Influenza like illness [Unknown]
  - C-reactive protein increased [Unknown]
  - Malaise [Unknown]
  - Condition aggravated [Unknown]

NARRATIVE: CASE EVENT DATE: 201905
